FAERS Safety Report 7519781-3 (Version None)
Quarter: 2011Q2

REPORT INFORMATION
  Report Type: 
  Country: None (occurrence: None)
  Receive Date: 20110602
  Receipt Date: 20110527
  Transmission Date: 20111010
  Serious: No
  Sender: FDA-Public Use
  Company Number: US-PFIZER INC-2011109004

PATIENT
  Sex: Female

DRUGS (3)
  1. IBUPROFEN [Suspect]
     Dosage: UNK
     Route: 065
     Dates: start: 20110501
  2. CORICIDIN [Suspect]
     Dosage: 2 MG, UNK
     Route: 048
     Dates: start: 20110502
  3. GUAIFENESIN [Suspect]
     Dosage: UNK
     Route: 065
     Dates: start: 20110502

REACTIONS (1)
  - RASH [None]
